FAERS Safety Report 6603057-2 (Version None)
Quarter: 2010Q1

REPORT INFORMATION
  Report Type: 
  Country: None (occurrence: None)
  Receive Date: 20100226
  Receipt Date: 20100212
  Transmission Date: 20100710
  Serious: Yes (Hospitalization, Disabling, Other)
  Sender: FDA-Public Use
  Company Number: PHEH2008US10486

PATIENT
  Sex: Female
  Weight: 87.075 kg

DRUGS (20)
  1. ZELNORM [Suspect]
     Indication: IRRITABLE BOWEL SYNDROME
     Dosage: 3 MG TWICE DAILY
     Dates: start: 20040101
  2. ZELNORM [Suspect]
     Dosage: 6 MG TWICE DAILY
  3. SYNTHROID [Concomitant]
  4. MULTI-VITAMINS [Concomitant]
  5. EFFEXOR [Concomitant]
  6. SOTALOL [Concomitant]
  7. PANTOPRAZOLE [Concomitant]
     Indication: REFLUX OESOPHAGITIS
  8. PACERONE [Concomitant]
  9. IRON SUPPLEMENTS [Concomitant]
  10. PROMETRIUM [Concomitant]
  11. TIKOSYN [Concomitant]
  12. LOVENOX [Concomitant]
  13. LISINOPRIL [Concomitant]
  14. ADVAIR DISKUS 100/50 [Concomitant]
  15. ECOTRIN [Concomitant]
  16. SOLU-MEDROL [Concomitant]
  17. MULTIPLE VITAMIN [Concomitant]
  18. XOPENEX [Concomitant]
  19. ZESTRIL [Concomitant]
  20. PROVENTIL [Concomitant]

REACTIONS (36)
  - ATELECTASIS [None]
  - ATRIAL FIBRILLATION [None]
  - ATRIAL TACHYCARDIA [None]
  - ATRIOVENTRICULAR BLOCK COMPLETE [None]
  - BLOOD LACTATE DEHYDROGENASE INCREASED [None]
  - CARDIAC ABLATION [None]
  - CARDIAC FAILURE [None]
  - CARDIAC FAILURE CONGESTIVE [None]
  - CEREBROVASCULAR ACCIDENT [None]
  - CEREBROVASCULAR SPASM [None]
  - CONGESTIVE CARDIOMYOPATHY [None]
  - DIAPHRAGMATIC PARALYSIS [None]
  - DYSARTHRIA [None]
  - DYSPNOEA EXERTIONAL [None]
  - EMBOLIC STROKE [None]
  - EMOTIONAL DISORDER [None]
  - ENCEPHALOMALACIA [None]
  - EXERCISE TOLERANCE DECREASED [None]
  - FATIGUE [None]
  - FIBULA FRACTURE [None]
  - GAIT DISTURBANCE [None]
  - HYPOAESTHESIA [None]
  - IMPLANTABLE DEFIBRILLATOR INSERTION [None]
  - INJURY [None]
  - INTERNATIONAL NORMALISED RATIO INCREASED [None]
  - KELOID SCAR [None]
  - LEFT VENTRICULAR DYSFUNCTION [None]
  - MUSCULAR WEAKNESS [None]
  - PRESYNCOPE [None]
  - PULMONARY HYPERTENSION [None]
  - SINUS HEADACHE [None]
  - TRANSIENT ISCHAEMIC ATTACK [None]
  - TRICUSPID VALVE INCOMPETENCE [None]
  - VAGINAL HAEMORRHAGE [None]
  - VENTRICULAR ARRHYTHMIA [None]
  - WEIGHT INCREASED [None]
